FAERS Safety Report 4936825-3 (Version None)
Quarter: 2006Q1

REPORT INFORMATION
  Report Type: 
  Country: None (occurrence: None)
  Receive Date: 20060307
  Receipt Date: 20050818
  Transmission Date: 20060701
  Serious: Yes (Hospitalization, Disabling)
  Sender: FDA-Public Use
  Company Number: US-MERCK-0508USA03484

PATIENT
  Age: 54 Year
  Sex: Male
  Weight: 145 kg

DRUGS (2)
  1. VIOXX [Suspect]
     Indication: OSTEOARTHRITIS
     Route: 048
     Dates: start: 20000101, end: 20040901
  2. VIOXX [Suspect]
     Route: 048
     Dates: start: 19990901, end: 20041001

REACTIONS (10)
  - ANGINA PECTORIS [None]
  - BACK DISORDER [None]
  - DEEP VEIN THROMBOSIS [None]
  - DEPRESSION [None]
  - HAEMORRHAGE [None]
  - HYPERTENSION [None]
  - INFECTION [None]
  - JOINT INJURY [None]
  - THROMBOSIS [None]
  - VASCULAR INSUFFICIENCY [None]
